FAERS Safety Report 25436223 (Version 1)
Quarter: 2025Q2

REPORT INFORMATION
  Report Type: Spontaneous
  Country: GB (occurrence: GB)
  Receive Date: 20250614
  Receipt Date: 20250614
  Transmission Date: 20250716
  Serious: Yes (Life-Threatening, Other)
  Sender: AUROBINDO
  Company Number: GB-MHRA-EMIS-1672-4ba194ca-13a9-4c41-a75e-17a94a26317f

PATIENT
  Age: 73 Year
  Sex: Male
  Weight: 80 kg

DRUGS (4)
  1. NINTEDANIB ESYLATE [Suspect]
     Active Substance: NINTEDANIB ESYLATE
     Indication: Product used for unknown indication
     Dosage: 1 DOSAGE FORM, TWO TIMES A DAY(ONE TO BE TAKEN TWICE A DAY)
     Route: 065
     Dates: start: 20230823
  2. SOLIFENACIN [Concomitant]
     Active Substance: SOLIFENACIN
     Indication: Lower urinary tract symptoms
     Route: 065
     Dates: start: 20241219, end: 20250130
  3. SERTRALINE [Concomitant]
     Active Substance: SERTRALINE HYDROCHLORIDE
     Indication: Depression
     Route: 065
     Dates: start: 20241223, end: 20250203
  4. MIRABEGRON [Concomitant]
     Active Substance: MIRABEGRON
     Indication: Adverse drug reaction
     Route: 065
     Dates: start: 20250310

REACTIONS (1)
  - Hydrocephalus [Unknown]
